FAERS Safety Report 5466823-5 (Version None)
Quarter: 2007Q3

REPORT INFORMATION
  Report Type: 
  Country: None (occurrence: None)
  Receive Date: 20070924
  Receipt Date: 20070924
  Transmission Date: 20080115
  Serious: No
  Sender: FDA-Public Use
  Company Number: None

PATIENT
  Age: 25 Year
  Sex: Female
  Weight: 99.3377 kg

DRUGS (1)
  1. QUETIAPINE FUMARATE [Suspect]
     Dosage: 25MG TID PO
     Route: 048
     Dates: start: 20070313, end: 20070410

REACTIONS (1)
  - WEIGHT INCREASED [None]
